FAERS Safety Report 7663723-7 (Version None)
Quarter: 2011Q3

REPORT INFORMATION
  Report Type: 
  Country: None (occurrence: None)
  Receive Date: 20110805
  Receipt Date: 20100831
  Transmission Date: 20111222
  Serious: No
  Sender: FDA-Public Use
  Company Number: US-ABBOTT-10P-163-0668655-00

PATIENT
  Sex: Male
  Weight: 65.83 kg

DRUGS (6)
  1. NIASPAN [Suspect]
     Indication: BLOOD CHOLESTEROL INCREASED
     Dates: start: 20080101
  2. FENESTERIDE [Concomitant]
     Indication: PROSTATIC DISORDER
  3. SYNTHROID [Concomitant]
     Indication: HYPOTHYROIDISM
  4. TRANDOLOPRIL [Concomitant]
     Indication: HYPERTENSION
  5. TOPROL-XL [Concomitant]
     Indication: HYPERTENSION
  6. TRIAMTERENE [Concomitant]
     Indication: HYPERTENSION

REACTIONS (1)
  - FLUSHING [None]
